FAERS Safety Report 7424901-5 (Version None)
Quarter: 2011Q2

REPORT INFORMATION
  Report Type: 
  Country: None (occurrence: None)
  Receive Date: 20110419
  Receipt Date: 20081013
  Transmission Date: 20111010
  Serious: Yes (Other)
  Sender: FDA-Public Use
  Company Number: DE-GENENTECH-316998

PATIENT
  Age: 83 Year
  Sex: Female

DRUGS (1)
  1. LUCENTIS [Suspect]
     Indication: MACULAR DEGENERATION
     Route: 031

REACTIONS (12)
  - WRIST FRACTURE [None]
  - CATARACT [None]
  - EYE PAIN [None]
  - TENDON RUPTURE [None]
  - NASOPHARYNGITIS [None]
  - INFLUENZA [None]
  - EYE DISCHARGE [None]
  - DRY EYE [None]
  - UPPER LIMB FRACTURE [None]
  - FALL [None]
  - HAEMATOMA [None]
  - HEADACHE [None]
